FAERS Safety Report 20611762 (Version 4)
Quarter: 2024Q1

REPORT INFORMATION
  Report Type: Spontaneous
  Country: TW (occurrence: TW)
  Receive Date: 20220318
  Receipt Date: 20240321
  Transmission Date: 20240409
  Serious: Yes (Death, Other)
  Sender: FDA-Public Use
  Company Number: TW-ALXN-A202203499

PATIENT
  Sex: Male

DRUGS (1)
  1. SOLIRIS [Suspect]
     Active Substance: ECULIZUMAB
     Indication: Atypical haemolytic uraemic syndrome
     Dosage: UNK UNK, QW
     Route: 065
     Dates: start: 20211013, end: 20211112

REACTIONS (1)
  - Cytomegalovirus viraemia [Fatal]
